FAERS Safety Report 6111617-0 (Version None)
Quarter: 2009Q1

REPORT INFORMATION
  Report Type: 
  Country: None (occurrence: None)
  Receive Date: 20090311
  Receipt Date: 20090310
  Transmission Date: 20090719
  Serious: Yes (Life-Threatening)
  Sender: FDA-Public Use
  Company Number: DK-WYE-G02560808

PATIENT
  Sex: Male
  Weight: 64 kg

DRUGS (11)
  1. RAPAMUNE [Suspect]
     Indication: GRAFT VERSUS HOST DISEASE
     Route: 048
     Dates: start: 20080523, end: 20080621
  2. PLENDIL [Concomitant]
     Indication: HYPERTENSION
     Route: 048
     Dates: start: 20070716, end: 20080423
  3. PREDNISOLONE [Concomitant]
     Indication: GRAFT VERSUS HOST DISEASE
     Route: 048
     Dates: start: 20070403
  4. NEORECORMON [Concomitant]
     Indication: ANAEMIA
     Route: 058
     Dates: start: 20080321
  5. PANTOPRAZOLE SODIUM [Interacting]
     Indication: DYSPEPSIA
     Dosage: UNKNOWN
     Dates: start: 20070330
  6. CIPROFLOXACIN HCL [Interacting]
     Indication: INFECTION
     Dosage: UNKNOWN
     Route: 048
     Dates: start: 20080529
  7. ZELITREX [Interacting]
     Indication: PROPHYLAXIS
     Dosage: UNKNOWN
     Dates: start: 20070319
  8. VFEND [Interacting]
     Dates: start: 20080403, end: 20080628
  9. DAPSONE [Interacting]
     Indication: PROPHYLAXIS
     Dosage: UNKNOWN
     Dates: start: 20070417
  10. INNOHEP [Concomitant]
     Indication: THROMBOPHLEBITIS
     Dosage: 9000 IE
     Route: 058
     Dates: start: 20050520
  11. FURIX [Interacting]
     Indication: DIURETIC THERAPY
     Dosage: UNKNOWN
     Route: 048
     Dates: start: 20080325

REACTIONS (1)
  - TOXIC EPIDERMAL NECROLYSIS [None]
